FAERS Safety Report 5719414-2 (Version None)
Quarter: 2008Q2

REPORT INFORMATION
  Report Type: 
  Country: None (occurrence: None)
  Receive Date: 20080428
  Receipt Date: 20080417
  Transmission Date: 20081010
  Serious: Yes (Other)
  Sender: FDA-Public Use
  Company Number: PHHO2008US05146

PATIENT
  Age: 63 Year
  Sex: Female
  Weight: 68.7 kg

DRUGS (4)
  1. ALDESLEUKIN [Suspect]
     Indication: METASTATIC RENAL CELL CARCINOMA
     Route: 042
     Dates: start: 20080310
  2. ATIVAN [Concomitant]
  3. XANAX [Concomitant]
  4. FUROSEMIDE [Concomitant]

REACTIONS (4)
  - EYE PRURITUS [None]
  - IRIDOCYCLITIS [None]
  - IRITIS [None]
  - VISION BLURRED [None]
